FAERS Safety Report 11929628 (Version 1)
Quarter: 2016Q1

REPORT INFORMATION
  Report Type: Spontaneous
  Country: US (occurrence: None)
  Receive Date: 20160119
  Receipt Date: 20160119
  Transmission Date: 20160526
  Serious: Yes (Other)
  Sender: FDA-Public Use
  Company Number: None

PATIENT
  Age: 86 Year
  Sex: Female
  Weight: 61.24 kg

DRUGS (10)
  1. CALCIUM [Concomitant]
     Active Substance: CALCIUM
  2. ZINC WITH VITAMIN D [Concomitant]
  3. VITAMIN B12 [Concomitant]
     Active Substance: CYANOCOBALAMIN
  4. CEPHALEXIN. [Suspect]
     Active Substance: CEPHALEXIN
     Indication: URINARY TRACT INFECTION
     Route: 048
     Dates: start: 20151201, end: 20151203
  5. LEVOTHYROXINE. [Concomitant]
     Active Substance: LEVOTHYROXINE
  6. DIOVAN [Concomitant]
     Active Substance: VALSARTAN
  7. GERITOL [Concomitant]
     Active Substance: MINERALS\VITAMINS
  8. NATURE MADE [Concomitant]
  9. AMLODIPINE BESYLATE. [Concomitant]
     Active Substance: AMLODIPINE BESYLATE
  10. MAGNESIUM [Concomitant]
     Active Substance: MAGNESIUM

REACTIONS (3)
  - Fall [None]
  - Nausea [None]
  - Dizziness [None]

NARRATIVE: CASE EVENT DATE: 20151203
